FAERS Safety Report 10501243 (Version 2)
Quarter: 2014Q4

REPORT INFORMATION
  Report Type: Spontaneous
  Country: US (occurrence: US)
  Receive Date: 20141007
  Receipt Date: 20141216
  Transmission Date: 20150528
  Serious: Yes (Hospitalization)
  Sender: FDA-Public Use
  Company Number: US-JNJFOC-20140923637

PATIENT
  Age: 26 Year
  Sex: Male

DRUGS (1)
  1. FENTANYL. [Suspect]
     Active Substance: FENTANYL
     Indication: PRODUCT USED FOR UNKNOWN INDICATION
     Route: 048

REACTIONS (13)
  - Drug abuse [Unknown]
  - Heart rate decreased [Unknown]
  - Incorrect route of drug administration [Unknown]
  - Respiratory rate decreased [Recovered/Resolved]
  - Body temperature decreased [Unknown]
  - Apnoea [Unknown]
  - Mental status changes [Recovered/Resolved]
  - Oxygen saturation decreased [Recovering/Resolving]
  - Cold sweat [Unknown]
  - Blood pressure increased [Unknown]
  - Overdose [Unknown]
  - Tachycardia [Unknown]
  - Miosis [Unknown]
